FAERS Safety Report 24387042 (Version 1)
Quarter: 2024Q4

REPORT INFORMATION
  Report Type: Report from Study
  Country: DE (occurrence: DE)
  Receive Date: 20241002
  Receipt Date: 20241002
  Transmission Date: 20250115
  Serious: Yes (Hospitalization, Other)
  Sender: EXELIXIS
  Company Number: DE-IPSEN Group, Research and Development-2024-07587

PATIENT

DRUGS (1)
  1. CABOZANTINIB [Suspect]
     Active Substance: CABOZANTINIB
     Indication: Metastatic renal cell carcinoma
     Dosage: UNK
     Route: 065

REACTIONS (8)
  - Thrombosis [Unknown]
  - Anal abscess [Unknown]
  - Dry mouth [Unknown]
  - Fatigue [Unknown]
  - Headache [Unknown]
  - Diarrhoea [Recovered/Resolved]
  - Stomatitis [Unknown]
  - Diarrhoea [Unknown]

NARRATIVE: CASE EVENT DATE: 20240418
